FAERS Safety Report 21073130 (Version 5)
Quarter: 2024Q4

REPORT INFORMATION
  Report Type: Spontaneous
  Country: US (occurrence: US)
  Receive Date: 20220712
  Receipt Date: 20241225
  Transmission Date: 20250115
  Serious: No
  Sender: SANOFI AVENTIS
  Company Number: US-SA-SAC20220708001879

PATIENT
  Age: 74 Year
  Sex: Female

DRUGS (12)
  1. DUPIXENT [Suspect]
     Active Substance: DUPILUMAB
     Indication: Dermatitis atopic
     Dosage: 600 MG, 1X
     Route: 058
     Dates: start: 20220707, end: 20220707
  2. DUPIXENT [Suspect]
     Active Substance: DUPILUMAB
     Dosage: 300 MG, QOW
     Route: 058
     Dates: start: 202207
  3. TYMLOS [Suspect]
     Active Substance: ABALOPARATIDE
     Indication: Senile osteoporosis
     Dosage: 80 UG, QD
     Route: 058
     Dates: start: 2022, end: 20241015
  4. TYMLOS [Suspect]
     Active Substance: ABALOPARATIDE
     Indication: Osteoporosis postmenopausal
  5. LIDODERM [Concomitant]
     Active Substance: LIDOCAINE
     Dates: start: 20231025, end: 20241022
  6. KLONOPIN [Concomitant]
     Active Substance: CLONAZEPAM
     Dates: start: 20231025, end: 20241022
  7. RESTASIS [Concomitant]
     Active Substance: CYCLOSPORINE
  8. MOBIC [Concomitant]
     Active Substance: MELOXICAM
     Dates: start: 20231025, end: 20241022
  9. HYDROCHLOROTHIAZIDE [Concomitant]
     Active Substance: HYDROCHLOROTHIAZIDE
     Dosage: UNK
     Dates: start: 202408, end: 20240829
  10. GEMTESA [Concomitant]
     Active Substance: VIBEGRON
  11. ZOLOFT [Concomitant]
     Active Substance: SERTRALINE HYDROCHLORIDE
  12. CRESTOR [Concomitant]
     Active Substance: ROSUVASTATIN CALCIUM

REACTIONS (21)
  - Headache [Unknown]
  - Pain [Recovering/Resolving]
  - Feeling cold [Unknown]
  - Fatigue [Recovering/Resolving]
  - Tremor [Recovering/Resolving]
  - Muscle twitching [Not Recovered/Not Resolved]
  - Dizziness [Recovering/Resolving]
  - Stress [Unknown]
  - Arthralgia [Recovered/Resolved]
  - Eye irritation [Unknown]
  - Dermatitis atopic [Unknown]
  - Asthenia [Recovering/Resolving]
  - Malaise [Recovering/Resolving]
  - Pain in extremity [Recovered/Resolved]
  - Nausea [Recovering/Resolving]
  - Bone pain [Recovering/Resolving]
  - Pelvic pain [Recovered/Resolved]
  - Balance disorder [Recovering/Resolving]
  - Gait disturbance [Recovering/Resolving]
  - Vertigo [Recovering/Resolving]
  - Back pain [Recovered/Resolved]

NARRATIVE: CASE EVENT DATE: 20220707
